FAERS Safety Report 4372882-3 (Version None)
Quarter: 2004Q2

REPORT INFORMATION
  Report Type: 
  Country: None (occurrence: None)
  Receive Date: 20040603
  Receipt Date: 20040517
  Transmission Date: 20050107
  Serious: Yes (Other)
  Sender: FDA-Public Use
  Company Number: A03200401579

PATIENT
  Age: 87 Year
  Sex: Male

DRUGS (4)
  1. LEUPROLIDE ACETATE [Suspect]
     Indication: PROSTATE CANCER
     Dosage: 22.5 MG ONCE - SUBCUTANEOUS
     Route: 058
     Dates: start: 20031001, end: 20031001
  2. AMLODIPINE BESYLATE [Concomitant]
  3. CLOPIDOGREL BISULFATE [Concomitant]
  4. ASPIRIN [Concomitant]

REACTIONS (3)
  - AMNESIA [None]
  - DIZZINESS [None]
  - LOSS OF CONSCIOUSNESS [None]
